FAERS Safety Report 9168045 (Version 2)
Quarter: 2013Q2

REPORT INFORMATION
  Report Type: Spontaneous
  Country: US (occurrence: US)
  Receive Date: 20130318
  Receipt Date: 20130430
  Transmission Date: 20140414
  Serious: No
  Sender: FDA-Public Use
  Company Number: US-VERTEX PHARMACEUTICALS INC.-2013-003621

PATIENT
  Age: 64 Year
  Sex: Female
  Weight: 61 kg

DRUGS (7)
  1. INCIVEK [Suspect]
     Indication: HEPATITIS C
     Dosage: 750 MG, TID
     Route: 048
     Dates: end: 201205
  2. PEGASYS [Suspect]
     Indication: HEPATITIS C
  3. RIBAVIRIN [Suspect]
     Indication: HEPATITIS C
  4. K-TAB [Concomitant]
     Dosage: 10 MEQ, UNK
  5. BENICAR [Concomitant]
     Indication: BLOOD PRESSURE INCREASED
     Dosage: 20 MG, QD
     Dates: start: 2010
  6. LUMIGAN [Concomitant]
     Dosage: UNK
  7. FIORINAL [Concomitant]
     Indication: HEADACHE
     Dosage: UNK

REACTIONS (6)
  - Malaise [Unknown]
  - Flatulence [Not Recovered/Not Resolved]
  - Abdominal discomfort [Unknown]
  - Blood cholesterol increased [Unknown]
  - Rash generalised [Unknown]
  - Drug ineffective [Unknown]
